FAERS Safety Report 4681076-3 (Version None)
Quarter: 2005Q2

REPORT INFORMATION
  Report Type: 
  Country: None (occurrence: None)
  Receive Date: 20050603
  Receipt Date: 20050405
  Transmission Date: 20051028
  Serious: Yes (Hospitalization)
  Sender: FDA-Public Use
  Company Number: JP-GLAXOSMITHKLINE-B0376923A

PATIENT
  Age: 82 Year
  Sex: Female

DRUGS (5)
  1. VALTREX [Suspect]
     Indication: HERPES ZOSTER
     Dosage: 1000MG THREE TIMES PER DAY
     Route: 048
     Dates: start: 20050324, end: 20050326
  2. GRAMALIL [Suspect]
     Indication: DEPRESSION
     Route: 048
     Dates: end: 20050327
  3. DOGMATYL [Suspect]
     Indication: DEPRESSION
     Route: 065
     Dates: end: 20050327
  4. NORVASC [Concomitant]
     Indication: HYPERTENSION
     Route: 048
     Dates: end: 20050327
  5. FORSENID [Concomitant]
     Indication: CONSTIPATION
     Route: 048
     Dates: end: 20050327

REACTIONS (4)
  - BLOOD CREATININE INCREASED [None]
  - DEPRESSED LEVEL OF CONSCIOUSNESS [None]
  - DYSSTASIA [None]
  - RENAL FAILURE ACUTE [None]
